FAERS Safety Report 21988112 (Version 1)
Quarter: 2023Q1

REPORT INFORMATION
  Report Type: Spontaneous
  Country: GB (occurrence: GB)
  Receive Date: 20230214
  Receipt Date: 20230214
  Transmission Date: 20230417
  Serious: Yes (Other)
  Sender: FDA-Public Use
  Company Number: GB-JNJFOC-20230206308

PATIENT
  Age: 25 Year
  Sex: Female
  Weight: 62 kg

DRUGS (5)
  1. ACETAMINOPHEN [Suspect]
     Active Substance: ACETAMINOPHEN
     Indication: Analgesic therapy
     Route: 065
     Dates: start: 20220719
  2. METRONIDAZOLE [Suspect]
     Active Substance: METRONIDAZOLE
     Indication: Prophylaxis
     Route: 065
     Dates: start: 20220719
  3. CEFUROXIME [Suspect]
     Active Substance: CEFUROXIME
     Indication: Prophylaxis
     Route: 065
     Dates: start: 20220719
  4. CODEINE [Suspect]
     Active Substance: CODEINE
     Indication: Labour pain
     Route: 065
     Dates: start: 20220719
  5. ONDANSETRON [Suspect]
     Active Substance: ONDANSETRON
     Indication: Nausea
     Dosage: ONDANSETRON 2MG/ML SOLUTION FOR INJECTION
     Route: 042
     Dates: start: 20220720, end: 20220720

REACTIONS (3)
  - Eye swelling [Recovered/Resolved]
  - Exposure during pregnancy [Unknown]
  - Lip swelling [Recovered/Resolved]

NARRATIVE: CASE EVENT DATE: 20220719
